FAERS Safety Report 9632798 (Version 4)
Quarter: 2014Q2

REPORT INFORMATION
  Report Type: Report from Study
  Country: CZ (occurrence: CZ)
  Receive Date: 20131018
  Receipt Date: 20140407
  Transmission Date: 20141212
  Serious: Yes (Hospitalization, Other)
  Sender: FDA-Public Use
  Company Number: CZ-ABBVIE-13P-217-1158202-00

PATIENT
  Age: 41 Year
  Sex: Female
  Weight: 49 kg

DRUGS (8)
  1. HUMIRA [Suspect]
     Indication: RHEUMATOID ARTHRITIS
     Route: 058
     Dates: start: 20080205, end: 20130530
  2. HUMIRA [Suspect]
     Route: 058
     Dates: start: 20130626
  3. MEDROL [Concomitant]
     Indication: PRODUCT USED FOR UNKNOWN INDICATION
  4. HELICID [Concomitant]
     Indication: PRODUCT USED FOR UNKNOWN INDICATION
  5. DETRALEX [Concomitant]
     Indication: PRODUCT USED FOR UNKNOWN INDICATION
  6. DICLOFENAC AL [Concomitant]
     Indication: PRODUCT USED FOR UNKNOWN INDICATION
  7. EGILOK [Concomitant]
     Indication: PRODUCT USED FOR UNKNOWN INDICATION
  8. CALTRATEPLUS TBL. (SALTS AND ICONS) [Concomitant]
     Indication: PRODUCT USED FOR UNKNOWN INDICATION

REACTIONS (1)
  - Bursitis [Recovering/Resolving]
